FAERS Safety Report 7549898-9 (Version None)
Quarter: 2011Q2

REPORT INFORMATION
  Report Type: 
  Country: None (occurrence: None)
  Receive Date: 20110615
  Receipt Date: 20110608
  Transmission Date: 20111010
  Serious: Yes (Hospitalization)
  Sender: FDA-Public Use
  Company Number: US-US-EMD SERONO, INC.-7062960

PATIENT
  Sex: Female

DRUGS (2)
  1. REBIF [Suspect]
     Indication: MULTIPLE SCLEROSIS
     Dates: start: 20100301, end: 20110501
  2. REBIF [Suspect]
     Route: 058
     Dates: start: 20110601

REACTIONS (6)
  - DYSPHEMIA [None]
  - VOMITING [None]
  - GAIT DISTURBANCE [None]
  - FALL [None]
  - BODY TEMPERATURE INCREASED [None]
  - URINARY INCONTINENCE [None]
